FAERS Safety Report 14023114 (Version 2)
Quarter: 2018Q2

REPORT INFORMATION
  Report Type: Spontaneous
  Country: FR (occurrence: FR)
  Receive Date: 20170929
  Receipt Date: 20180521
  Transmission Date: 20180711
  Serious: Yes (Other)
  Sender: FDA-Public Use
  Company Number: FR-MERCK KGAA-2028196

PATIENT
  Age: 38 Year
  Sex: Female

DRUGS (1)
  1. NOVOTHYROX [Suspect]
     Active Substance: LEVOTHYROXINE SODIUM
     Indication: HYPOTHYROIDISM

REACTIONS (15)
  - Personal relationship issue [None]
  - Myalgia [None]
  - Headache [Not Recovered/Not Resolved]
  - Loss of personal independence in daily activities [None]
  - Weight increased [Not Recovered/Not Resolved]
  - Muscle strain [Not Recovered/Not Resolved]
  - Depression [None]
  - Fatigue [Not Recovered/Not Resolved]
  - Ligament sprain [None]
  - Mood swings [None]
  - Insomnia [None]
  - Alopecia [Not Recovered/Not Resolved]
  - Disturbance in attention [Not Recovered/Not Resolved]
  - Crying [None]
  - Impaired work ability [None]

NARRATIVE: CASE EVENT DATE: 2017
